FAERS Safety Report 19035851 (Version 1)
Quarter: 2021Q1

REPORT INFORMATION
  Report Type: Report from Study
  Country: IT (occurrence: IT)
  Receive Date: 20210321
  Receipt Date: 20210321
  Transmission Date: 20210420
  Serious: Yes (Hospitalization)
  Sender: FDA-Public Use
  Company Number: IT-TEVA-2021-IT-1891308

PATIENT
  Age: 48 Year
  Sex: Female

DRUGS (2)
  1. NOBISTAR 5 MG COMPRESSE [Suspect]
     Active Substance: NEBIVOLOL HYDROCHLORIDE
     Indication: HYPERTENSION
     Dosage: 5MG
     Route: 048
     Dates: start: 20200730
  2. AMLODIPINE [Suspect]
     Active Substance: AMLODIPINE BESYLATE
     Indication: HYPERTENSION
     Dosage: 1DF
     Route: 048
     Dates: start: 20200730

REACTIONS (4)
  - Chest discomfort [Recovering/Resolving]
  - Hypertension [Recovering/Resolving]
  - Drug ineffective [Recovering/Resolving]
  - Dyspnoea [Recovering/Resolving]

NARRATIVE: CASE EVENT DATE: 20210123
